FAERS Safety Report 7673473-9 (Version None)
Quarter: 2011Q3

REPORT INFORMATION
  Report Type: 
  Country: None (occurrence: None)
  Receive Date: 20110810
  Receipt Date: 20110808
  Transmission Date: 20111222
  Serious: No
  Sender: FDA-Public Use
  Company Number: US-PFIZER INC-2011181901

PATIENT
  Sex: Female
  Weight: 48.073 kg

DRUGS (2)
  1. LIPITOR [Suspect]
     Indication: BLOOD CHOLESTEROL INCREASED
     Dosage: 20 MG, 1X/DAY
     Route: 048
     Dates: end: 20110515
  2. DIGOXIN [Concomitant]
     Indication: PALPITATIONS
     Dosage: 250 MCG, 1X/DAY

REACTIONS (4)
  - ARTHRITIS [None]
  - ASTHENIA [None]
  - STRESS [None]
  - WEIGHT DECREASED [None]
